FAERS Safety Report 7929081-5 (Version None)
Quarter: 2011Q4

REPORT INFORMATION
  Report Type: 
  Country: None (occurrence: None)
  Receive Date: 20111119
  Receipt Date: 20111114
  Transmission Date: 20120403
  Serious: Yes (Life-Threatening, Hospitalization)
  Sender: FDA-Public Use
  Company Number: CA-ASTRAZENECA-2011SE69090

PATIENT
  Sex: Male
  Weight: 108 kg

DRUGS (1)
  1. NEXIUM [Suspect]
     Route: 048

REACTIONS (5)
  - CHILLS [None]
  - RASH [None]
  - BURNING SENSATION [None]
  - SWELLING [None]
  - PALPITATIONS [None]
